FAERS Safety Report 13301072 (Version 1)
Quarter: 2017Q1

REPORT INFORMATION
  Report Type: Spontaneous
  Country: US (occurrence: US)
  Receive Date: 20170307
  Receipt Date: 20170307
  Transmission Date: 20170428
  Serious: No
  Sender: FDA-Public Use
  Company Number: US-BAYER-2017-043837

PATIENT
  Age: 84 Year
  Sex: Male
  Weight: 45 kg

DRUGS (3)
  1. MIRALAX [Suspect]
     Active Substance: POLYETHYLENE GLYCOL 3350
     Indication: CONSTIPATION
     Dosage: 17 G, UNK
     Route: 048
     Dates: start: 2015, end: 201702
  2. VITAMIN D [Concomitant]
     Active Substance: CHOLECALCIFEROL
     Dosage: UNK
  3. VALIUM [Concomitant]
     Active Substance: DIAZEPAM

REACTIONS (5)
  - Abdominal distension [Recovered/Resolved]
  - Off label use [Unknown]
  - Product use issue [Unknown]
  - Expired product administered [None]
  - Flatulence [Recovered/Resolved]

NARRATIVE: CASE EVENT DATE: 201702
